FAERS Safety Report 6933005-7 (Version None)
Quarter: 2010Q3

REPORT INFORMATION
  Report Type: 
  Country: None (occurrence: None)
  Receive Date: 20100818
  Receipt Date: 20100818
  Transmission Date: 20110219
  Serious: Yes (Other)
  Sender: FDA-Public Use
  Company Number: None

PATIENT
  Sex: Female
  Weight: 87.5442 kg

DRUGS (1)
  1. LOSARTAN POTASSIUM [Suspect]
     Indication: HYPERTENSION
     Dosage: 50 MG ONCE QD PO
     Route: 048
     Dates: start: 20100101, end: 20100601

REACTIONS (2)
  - GENERALISED OEDEMA [None]
  - OEDEMA PERIPHERAL [None]
